FAERS Safety Report 6542463-1 (Version None)
Quarter: 2010Q1

REPORT INFORMATION
  Report Type: 
  Country: None (occurrence: None)
  Receive Date: 20100119
  Receipt Date: 20100114
  Transmission Date: 20100710
  Serious: Yes (Other)
  Sender: FDA-Public Use
  Company Number: DE-WYE-G05340310

PATIENT
  Sex: Female

DRUGS (23)
  1. TORISEL [Suspect]
     Indication: METASTATIC RENAL CELL CARCINOMA
     Route: 042
     Dates: start: 20081028, end: 20081028
  2. TORISEL [Suspect]
     Route: 042
     Dates: start: 20081104, end: 20090312
  3. TORISEL [Suspect]
     Route: 042
     Dates: start: 20090416, end: 20090604
  4. DECORTIN [Concomitant]
     Indication: PEMPHIGUS
     Route: 048
  5. SPIRONOLACTONE [Concomitant]
     Route: 048
  6. DIGIMERCK [Concomitant]
     Route: 048
  7. FUROSEMIDE [Concomitant]
     Route: 048
  8. IDEOS [Concomitant]
     Indication: OSTEOPOROSIS
     Route: 048
  9. METOPROLOL [Concomitant]
     Route: 048
  10. FOSAMAX [Concomitant]
  11. ISOPHANE INSULIN [Concomitant]
  12. INSUMAN [Concomitant]
  13. HEPARIN SODIUM [Concomitant]
  14. METAMIZOLE [Concomitant]
  15. ALOES/CAMPHOR/HERBAL EXTRACTS NOS/MYRRH TINCTURE/RHUBARB EXTRACT/SENNA [Concomitant]
  16. FENISTIL [Concomitant]
     Indication: PREMEDICATION
     Dates: start: 20081028, end: 20090312
  17. FENISTIL [Concomitant]
     Dates: start: 20090416, end: 20090604
  18. METOCLOPRAMIDE [Concomitant]
  19. ZOMETA [Concomitant]
     Dosage: 4 MG, FREQUENCY UNKNOWN
     Dates: end: 20090301
  20. BONDRONAT [Concomitant]
     Route: 042
     Dates: start: 20090305
  21. BEZAFIBRATE [Concomitant]
     Indication: HYPERTRIGLYCERIDAEMIA
     Route: 048
  22. ZOPICLONE [Concomitant]
  23. CELLCEPT [Concomitant]
     Indication: PEMPHIGUS
     Route: 048

REACTIONS (1)
  - LUNG INFILTRATION [None]
